FAERS Safety Report 19066891 (Version 2)
Quarter: 2021Q2

REPORT INFORMATION
  Report Type: Spontaneous
  Country: DE (occurrence: DE)
  Receive Date: 20210329
  Receipt Date: 20210427
  Transmission Date: 20210717
  Serious: Yes (Other)
  Sender: FDA-Public Use
  Company Number: DE-AUROBINDO-AUR-APL-2021-011310

PATIENT
  Sex: Female
  Weight: 75 kg

DRUGS (3)
  1. LAMOTRIGINE AUROBINDO TABLETS 25MG [Suspect]
     Active Substance: LAMOTRIGINE
     Indication: SEIZURE
     Dosage: 150 MILLIGRAM, TWO TIMES A DAY
     Route: 048
     Dates: start: 202101, end: 20210418
  2. FOLINIC ACID [Concomitant]
     Active Substance: LEUCOVORIN
     Indication: PREGNANCY
     Dosage: UNK
     Route: 048
  3. L?THYROXIN [Concomitant]
     Active Substance: LEVOTHYROXINE SODIUM
     Indication: HYPOTHYROIDISM
     Dosage: UNK
     Route: 048

REACTIONS (7)
  - Vomiting [Recovered/Resolved]
  - Galactorrhoea [Recovering/Resolving]
  - Fatigue [Recovering/Resolving]
  - Nausea [Recovered/Resolved]
  - Biliary colic [Not Recovered/Not Resolved]
  - Back pain [Not Recovered/Not Resolved]
  - Pancreatitis [Not Recovered/Not Resolved]

NARRATIVE: CASE EVENT DATE: 202101
